FAERS Safety Report 5232722-7 (Version None)
Quarter: 2007Q1

REPORT INFORMATION
  Report Type: 
  Country: None (occurrence: None)
  Receive Date: 20070207
  Receipt Date: 20070206
  Transmission Date: 20070707
  Serious: Yes (Other)
  Sender: FDA-Public Use
  Company Number: 200710543EU

PATIENT
  Sex: Male

DRUGS (1)
  1. NICORETTE [Suspect]
     Route: 002

REACTIONS (2)
  - DEPENDENCE [None]
  - INTENTIONAL DRUG MISUSE [None]
